FAERS Safety Report 4692463-1 (Version None)
Quarter: 2005Q2

REPORT INFORMATION
  Report Type: 
  Country: None (occurrence: None)
  Receive Date: 20050613
  Receipt Date: 20050505
  Transmission Date: 20051028
  Serious: Yes (Hospitalization)
  Sender: FDA-Public Use
  Company Number: 2005-00820

PATIENT

DRUGS (2)
  1. VELCADE [Suspect]
     Dosage: 3.50 MG
  2. DILANTIN [Concomitant]

REACTIONS (1)
  - CONVULSION [None]
